FAERS Safety Report 4783932-4 (Version None)
Quarter: 2005Q3

REPORT INFORMATION
  Report Type: 
  Country: None (occurrence: None)
  Receive Date: 20050928
  Receipt Date: 20050908
  Transmission Date: 20060218
  Serious: Yes (Death, Hospitalization)
  Sender: FDA-Public Use
  Company Number: 200512885GDS

PATIENT
  Age: 88 Year
  Sex: Male
  Weight: 60 kg

DRUGS (5)
  1. ACETYLSALICYLIC ACID SRT [Suspect]
     Indication: ANTICOAGULANT THERAPY
     Dosage: 100 MG, ORAL
     Route: 048
     Dates: start: 20050621
  2. BIVALIRUDIN [Suspect]
     Indication: ANTICOAGULANT THERAPY
     Dosage: SEE IMAGE
     Dates: start: 20050621
  3. TIROFIBAN [Suspect]
     Indication: ACUTE CORONARY SYNDROME
     Dosage: SEE IMAGE
     Dates: start: 20050621, end: 20050622
  4. TIROFIBAN [Suspect]
     Indication: ACUTE CORONARY SYNDROME
     Dosage: SEE IMAGE
     Dates: start: 20050621
  5. CLOPIDOGREL BISULFATE [Suspect]
     Indication: ANTICOAGULANT THERAPY
     Dosage: 75 UG, ORAL
     Route: 048
     Dates: start: 20050621

REACTIONS (5)
  - CIRCULATORY COLLAPSE [None]
  - HAEMOTHORAX [None]
  - PERICARDIAL EFFUSION [None]
  - PERICARDITIS [None]
  - PLEURAL HAEMORRHAGE [None]
